FAERS Safety Report 9370010 (Version 1)
Quarter: 2013Q2

REPORT INFORMATION
  Report Type: Spontaneous
  Country: GB (occurrence: GB)
  Receive Date: 20130626
  Receipt Date: 20130626
  Transmission Date: 20140414
  Serious: Yes (Other)
  Sender: FDA-Public Use
  Company Number: GB-ABBOTT-13P-167-1070930-00

PATIENT
  Age: 44 Year
  Sex: Female

DRUGS (2)
  1. HUMIRA [Suspect]
     Indication: PSORIASIS
     Route: 058
     Dates: start: 200902
  2. BENDROFLUAZIDE [Concomitant]
     Indication: HYPERTENSION

REACTIONS (2)
  - Feeling cold [Not Recovered/Not Resolved]
  - Local swelling [Not Recovered/Not Resolved]
